FAERS Safety Report 15414109 (Version 4)
Quarter: 2018Q4

REPORT INFORMATION
  Report Type: Spontaneous
  Country: CA (occurrence: CA)
  Receive Date: 20180921
  Receipt Date: 20181113
  Transmission Date: 20190204
  Serious: Yes (Other)
  Sender: FDA-Public Use
  Company Number: CA-JNJFOC-20180916896

PATIENT
  Sex: Female

DRUGS (16)
  1. MORPHINE [Concomitant]
     Active Substance: MORPHINE
     Route: 065
  2. NIFEDIPINE. [Concomitant]
     Active Substance: NIFEDIPINE
     Route: 065
  3. DICLOFENAC [Concomitant]
     Active Substance: DICLOFENAC
     Route: 065
  4. DOXYCYCLINE. [Concomitant]
     Active Substance: DOXYCYCLINE
     Route: 048
  5. BUDESONIDE. [Concomitant]
     Active Substance: BUDESONIDE
     Route: 065
     Dates: start: 20170303
  6. SALBUTAMOL [Concomitant]
     Active Substance: ALBUTEROL
     Route: 065
     Dates: start: 20120613
  7. REMICADE [Suspect]
     Active Substance: INFLIXIMAB
     Indication: PRODUCT USED FOR UNKNOWN INDICATION
     Route: 042
     Dates: start: 2012
  8. PREDNISONE. [Concomitant]
     Active Substance: PREDNISONE
     Route: 048
     Dates: start: 20170929
  9. CYANOCOBALAMIN. [Concomitant]
     Active Substance: CYANOCOBALAMIN
     Route: 065
  10. METHOTREXATE. [Suspect]
     Active Substance: METHOTREXATE
     Indication: PRODUCT USED FOR UNKNOWN INDICATION
     Route: 050
     Dates: end: 2016
  11. HYDROMORPHONE [Concomitant]
     Active Substance: HYDROMORPHONE
     Indication: PAIN
     Route: 048
  12. BUPIVACAINE. [Concomitant]
     Active Substance: BUPIVACAINE
     Route: 065
     Dates: start: 20161216
  13. SALBUTAMOL [Concomitant]
     Active Substance: ALBUTEROL
     Route: 065
     Dates: start: 20170303
  14. REMICADE [Suspect]
     Active Substance: INFLIXIMAB
     Indication: PRODUCT USED FOR UNKNOWN INDICATION
     Route: 042
     Dates: start: 201701, end: 201709
  15. HYDROMORPHONE [Concomitant]
     Active Substance: HYDROMORPHONE
     Indication: PAIN
     Route: 048
  16. DILTIAZEM. [Concomitant]
     Active Substance: DILTIAZEM
     Route: 065
     Dates: start: 20180713

REACTIONS (6)
  - Decreased appetite [Not Recovered/Not Resolved]
  - Respiratory tract infection [Unknown]
  - Drug ineffective [Unknown]
  - Renal disorder [Unknown]
  - Nausea [Unknown]
  - Weight decreased [Unknown]

NARRATIVE: CASE EVENT DATE: 2017
